FAERS Safety Report 6301784-8 (Version None)
Quarter: 2009Q3

REPORT INFORMATION
  Report Type: 
  Country: None (occurrence: None)
  Receive Date: 20090807
  Receipt Date: 20090806
  Transmission Date: 20100115
  Serious: Yes (Other)
  Sender: FDA-Public Use
  Company Number: US-WYE-H09941209

PATIENT
  Sex: Male

DRUGS (1)
  1. ZOSYN [Suspect]
     Dosage: UNKNOWN
     Route: 042
     Dates: start: 20080101, end: 20080101

REACTIONS (3)
  - ANAPHYLACTIC REACTION [None]
  - TACHYCARDIA [None]
  - VISION BLURRED [None]
